FAERS Safety Report 24732621 (Version 1)
Quarter: 2024Q4

REPORT INFORMATION
  Report Type: Spontaneous
  Country: HR (occurrence: HR)
  Receive Date: 20241213
  Receipt Date: 20241213
  Transmission Date: 20250115
  Serious: Yes (Other)
  Sender: BAYER HEALTHCARE PHARMACEUTICALS INC.
  Company Number: HR-BAYER-2024A173373

PATIENT
  Sex: Male

DRUGS (1)
  1. NUBEQA [Suspect]
     Active Substance: DAROLUTAMIDE
     Indication: Hormone-refractory prostate cancer
     Dosage: 600 MG, BID
     Route: 048

REACTIONS (11)
  - Metastases to bone [None]
  - Metastases to abdominal wall [None]
  - Blood pressure increased [Recovering/Resolving]
  - Prostatic specific antigen increased [Not Recovered/Not Resolved]
  - Oedema peripheral [None]
  - Sensitive skin [None]
  - Ecchymosis [None]
  - Injury [None]
  - Peripheral swelling [Recovering/Resolving]
  - Pleural effusion [None]
  - General physical health deterioration [None]
